FAERS Safety Report 4475482-X (Version None)
Quarter: 2004Q4

REPORT INFORMATION
  Report Type: 
  Country: None (occurrence: None)
  Receive Date: 20041015
  Receipt Date: 20041013
  Transmission Date: 20050328
  Serious: Yes (Life-Threatening, Other)
  Sender: FDA-Public Use
  Company Number: PR-BRISTOL-MYERS SQUIBB COMPANY-12730628

PATIENT
  Age: 44 Year
  Sex: Male
  Weight: 74 kg

DRUGS (3)
  1. ZERIT XR [Suspect]
     Indication: HIV INFECTION
     Route: 048
     Dates: start: 20040706
  2. COVIRACIL [Suspect]
     Indication: HIV INFECTION
     Route: 048
     Dates: start: 20040706
  3. KALETRA [Suspect]
     Indication: HIV INFECTION
     Dosage: CAPSULES 133.3/33.3 MG
     Route: 048
     Dates: start: 20040706

REACTIONS (2)
  - BLOOD CHOLESTEROL INCREASED [None]
  - HYPERTRIGLYCERIDAEMIA [None]
